FAERS Safety Report 7788379-4 (Version None)
Quarter: 2011Q3

REPORT INFORMATION
  Report Type: 
  Country: None (occurrence: None)
  Receive Date: 20110930
  Receipt Date: 20110919
  Transmission Date: 20111222
  Serious: Yes (Hospitalization)
  Sender: FDA-Public Use
  Company Number: US-JNJFOC-20101200578

PATIENT
  Sex: Female
  Weight: 43 kg

DRUGS (3)
  1. HUMIRA [Concomitant]
     Indication: CROHN'S DISEASE
     Dates: end: 20091228
  2. ANTIBIOTICS [Concomitant]
  3. INFLIXIMAB, RECOMBINANT [Suspect]
     Indication: CROHN'S DISEASE
     Route: 042
     Dates: start: 20090401, end: 20091009

REACTIONS (1)
  - WEIGHT DECREASED [None]
